FAERS Safety Report 7096661-1 (Version None)
Quarter: 2010Q4

REPORT INFORMATION
  Report Type: 
  Country: None (occurrence: None)
  Receive Date: 20101103
  Receipt Date: 20101025
  Transmission Date: 20110411
  Serious: Yes (Hospitalization)
  Sender: FDA-Public Use
  Company Number: 2010JP002095

PATIENT
  Sex: Male

DRUGS (6)
  1. PROGRAF [Suspect]
     Indication: CHOLESTASIS
     Dosage: 0.3 MG, BID, ORAL
     Route: 048
     Dates: start: 20090512, end: 20090525
  2. STEROIDS () PER ORAL NOS [Suspect]
     Dosage: ORAL
     Route: 048
  3. CELLCEPT (MYCOPHENOLATE MOFETIL) [Concomitant]
  4. CYCLOSPORINE [Concomitant]
  5. COTRIM [Concomitant]
  6. ANGINAL (DIPYRIDAMOLE) [Concomitant]

REACTIONS (2)
  - ASCITES [None]
  - HEPATIC VEIN OCCLUSION [None]
